FAERS Safety Report 18429344 (Version 4)
Quarter: 2022Q2

REPORT INFORMATION
  Report Type: Spontaneous
  Country: US (occurrence: US)
  Receive Date: 20201026
  Receipt Date: 20220415
  Transmission Date: 20220721
  Serious: No
  Sender: FDA-Public Use
  Company Number: US-PFIZER INC-2020413083

PATIENT
  Age: 69 Year
  Sex: Female

DRUGS (2)
  1. XELJANZ XR [Suspect]
     Active Substance: TOFACITINIB CITRATE
     Dosage: 11 MG
     Dates: start: 202008
  2. XELJANZ XR [Suspect]
     Active Substance: TOFACITINIB CITRATE
     Dosage: 11 MG
     Dates: start: 202008

REACTIONS (4)
  - Pain in extremity [Not Recovered/Not Resolved]
  - Arthralgia [Unknown]
  - Sensitivity to weather change [Unknown]
  - Pain [Not Recovered/Not Resolved]
